FAERS Safety Report 20156658 (Version 7)
Quarter: 2022Q3

REPORT INFORMATION
  Report Type: Report from Study
  Country: CN (occurrence: CN)
  Receive Date: 20211207
  Receipt Date: 20220809
  Transmission Date: 20221026
  Serious: Yes (Hospitalization)
  Sender: FDA-Public Use
  Company Number: CN-PFIZER INC-202101677598

PATIENT
  Age: 66 Year
  Sex: Male
  Weight: 86 kg

DRUGS (18)
  1. PACLITAXEL [Suspect]
     Active Substance: PACLITAXEL
     Indication: Squamous cell carcinoma of lung
     Dosage: 343 MG, EVERY 3 WEEKS (1X/3 WEEKS)
     Route: 042
     Dates: start: 20210812, end: 20210812
  2. PACLITAXEL [Suspect]
     Active Substance: PACLITAXEL
     Dosage: 345 MG, EVERY 3 WEEKS (1X/3 WEEKS)
     Route: 042
     Dates: start: 20210903, end: 20210903
  3. PACLITAXEL [Suspect]
     Active Substance: PACLITAXEL
     Dosage: 345 MG, EVERY 3 WEEKS (1X/3 WEEKS)
     Route: 042
     Dates: start: 20210924, end: 20210924
  4. PACLITAXEL [Suspect]
     Active Substance: PACLITAXEL
     Dosage: 345 MG, EVERY 3 WEEKS (1X/3 WEEKS)
     Route: 042
     Dates: start: 20211015, end: 20211015
  5. CARBOPLATIN [Suspect]
     Active Substance: CARBOPLATIN
     Indication: Squamous cell carcinoma of lung
     Dosage: 655 MG, EVERY 3 WEEKS (1X/3 WEEKS)
     Route: 042
     Dates: start: 20210812, end: 20210812
  6. CARBOPLATIN [Suspect]
     Active Substance: CARBOPLATIN
     Dosage: 601 MG, EVERY 3 WEEKS (1X/3 WEEKS)
     Route: 042
     Dates: start: 20210903, end: 20210903
  7. CARBOPLATIN [Suspect]
     Active Substance: CARBOPLATIN
     Dosage: 676 MG, EVERY 3 WEEKS (1X/3 WEEKS)
     Route: 042
     Dates: start: 20210924, end: 20210924
  8. CARBOPLATIN [Suspect]
     Active Substance: CARBOPLATIN
     Dosage: 676 MG, EVERY 3 WEEKS (1X/3 WEEKS)
     Route: 042
     Dates: start: 20211015, end: 20211015
  9. INVESTIGATIONAL PRODUCT [Suspect]
     Active Substance: INVESTIGATIONAL PRODUCT
     Indication: Squamous cell carcinoma of lung
     Dosage: CYCLE 1 THERAPY, EVERY 3 WEEKS
     Route: 042
     Dates: start: 20210811, end: 20210811
  10. INVESTIGATIONAL PRODUCT [Suspect]
     Active Substance: INVESTIGATIONAL PRODUCT
     Dosage: CYCLE 2 THERAPY,  EVERY 3 WEEKS
     Route: 042
     Dates: start: 20210902, end: 20210902
  11. INVESTIGATIONAL PRODUCT [Suspect]
     Active Substance: INVESTIGATIONAL PRODUCT
     Dosage: CYCLE 3 THERAPY,  EVERY 3 WEEKS
     Route: 042
     Dates: start: 20210923, end: 20210923
  12. INVESTIGATIONAL PRODUCT [Suspect]
     Active Substance: INVESTIGATIONAL PRODUCT
     Dosage: CYCLE 4 THERAPY,  EVERY 3 WEEKS
     Route: 042
     Dates: start: 20211014, end: 20211014
  13. INVESTIGATIONAL PRODUCT [Suspect]
     Active Substance: INVESTIGATIONAL PRODUCT
     Dosage: CYCLE 5 THERAPY, EVERY 2 WEEKS
     Route: 042
     Dates: start: 20211104, end: 20211104
  14. INVESTIGATIONAL PRODUCT [Suspect]
     Active Substance: INVESTIGATIONAL PRODUCT
     Dosage: CYCLE 6 THERAPY, EVERY 2 WEEKS
     Route: 042
     Dates: start: 20211201, end: 20211201
  15. CIMETIDINE [Concomitant]
     Active Substance: CIMETIDINE
     Indication: Prophylaxis
     Dosage: 400 MG, EVERY 2 WEEKS
     Route: 041
     Dates: start: 20211104, end: 20211201
  16. DIPHENHYDRAMINE [Concomitant]
     Active Substance: DIPHENHYDRAMINE
     Indication: Prophylaxis
     Dosage: 40 MG, EVERY 2 WEEKS
     Route: 030
     Dates: start: 20211104, end: 20211201
  17. IBUPROFEN [Concomitant]
     Active Substance: IBUPROFEN
     Indication: Prophylaxis
     Dosage: 0.3 G, EVERY 2 WEEKS
     Route: 048
     Dates: start: 20211104, end: 20211201
  18. LEUCOGEN [Concomitant]
     Active Substance: LEUCOGEN
     Indication: Prophylaxis
     Dosage: 20 MG, 3X/DAY
     Route: 048
     Dates: start: 20210812

REACTIONS (1)
  - Arteriosclerosis coronary artery [Recovered/Resolved]

NARRATIVE: CASE EVENT DATE: 20211110
